FAERS Safety Report 25364639 (Version 2)
Quarter: 2025Q3

REPORT INFORMATION
  Report Type: Spontaneous
  Country: EU (occurrence: EU)
  Receive Date: 20250527
  Receipt Date: 20250709
  Transmission Date: 20251021
  Serious: No
  Sender: ESPERION THERAPEUTICS
  Company Number: EU-SANDOZ-SDZ2025IT021638

PATIENT

DRUGS (10)
  1. BEMPEDOIC ACID [Suspect]
     Active Substance: BEMPEDOIC ACID
     Indication: Hypercholesterolaemia
     Dosage: 180 MG, QD
     Route: 048
     Dates: start: 20230501
  2. EZETIMIBE [Interacting]
     Active Substance: EZETIMIBE
     Indication: Hyperlipidaemia
     Dosage: 10 MG, QD
     Route: 065
  3. FENOFIBRATE [Interacting]
     Active Substance: FENOFIBRATE
     Indication: Hyperlipidaemia
     Dosage: 145 MG, QD
     Route: 065
     Dates: start: 2016, end: 20241010
  4. FENOFIBRATE [Interacting]
     Active Substance: FENOFIBRATE
     Indication: Hypercholesterolaemia
  5. EVOLOCUMAB [Suspect]
     Active Substance: EVOLOCUMAB
     Indication: Hyperlipidaemia
     Dosage: 420 MG, ONCE EVERY 4 WK (EVERY 28 DAYS)
     Route: 058
     Dates: start: 2017
  6. RANOLAZINE [Suspect]
     Active Substance: RANOLAZINE
     Indication: Hyperlipidaemia
     Dosage: 375 MG, TWICE EVERY 1WK (BIW)
     Route: 065
  7. BISOPROLOL FUMARATE [Suspect]
     Active Substance: BISOPROLOL FUMARATE
     Indication: Hyperlipidaemia
     Route: 065
  8. VALSARTAN [Suspect]
     Active Substance: VALSARTAN
     Indication: Hyperlipidaemia
     Dosage: 80 MG, QD, 1 TABLET/DAY
     Route: 065
  9. LEVOTHYROXINE [Suspect]
     Active Substance: LEVOTHYROXINE
     Indication: Hyperlipidaemia
     Dosage: 175 UG, QD, 1 TABLET/DAY
     Route: 065
  10. PANTOPRAZOLE SODIUM [Suspect]
     Active Substance: PANTOPRAZOLE SODIUM
     Indication: Hyperlipidaemia
     Dosage: 20 MG, QD, 1 TABLET/DAY
     Route: 065

REACTIONS (2)
  - High density lipoprotein decreased [Recovering/Resolving]
  - Drug interaction [Unknown]

NARRATIVE: CASE EVENT DATE: 20240905
